FAERS Safety Report 10282397 (Version 1)
Quarter: 2014Q3

REPORT INFORMATION
  Report Type: Spontaneous
  Country: US (occurrence: US)
  Receive Date: 20140707
  Receipt Date: 20140707
  Transmission Date: 20150326
  Serious: No
  Sender: FDA-Public Use
  Company Number: US-GILEAD-2014-0107385

PATIENT
  Sex: Male

DRUGS (2)
  1. RIBAVIRIN. [Concomitant]
     Active Substance: RIBAVIRIN
  2. SOVALDI [Suspect]
     Active Substance: SOFOSBUVIR
     Indication: PRODUCT USED FOR UNKNOWN INDICATION
     Route: 065

REACTIONS (9)
  - Somnolence [Unknown]
  - Arthralgia [Unknown]
  - Restless legs syndrome [Unknown]
  - Dizziness [Unknown]
  - Weight increased [Unknown]
  - Fatigue [Unknown]
  - Product packaging quantity issue [Recovered/Resolved]
  - Nausea [Unknown]
  - Night sweats [Unknown]
